FAERS Safety Report 23712427 (Version 1)
Quarter: 2024Q2

REPORT INFORMATION
  Report Type: Spontaneous
  Country: US (occurrence: US)
  Receive Date: 20240405
  Receipt Date: 20240405
  Transmission Date: 20240716
  Serious: No
  Sender: FDA-Public Use
  Company Number: US-TRIS PHARMA, INC.-24US011430

PATIENT

DRUGS (1)
  1. QUILLIVANT XR [Suspect]
     Active Substance: METHYLPHENIDATE HYDROCHLORIDE
     Indication: Attention deficit hyperactivity disorder
     Dosage: 1.75 MILLILITRE, QD
     Route: 048
     Dates: start: 202310

REACTIONS (6)
  - Off label use [Unknown]
  - Intentional product use issue [Unknown]
  - Product container issue [Unknown]
  - Product dispensing error [Unknown]
  - Product physical consistency issue [Unknown]
  - Therapeutic response shortened [Unknown]

NARRATIVE: CASE EVENT DATE: 20231001
